FAERS Safety Report 11872240 (Version 1)
Quarter: 2015Q4

REPORT INFORMATION
  Report Type: Report from Study
  Country: AU (occurrence: AU)
  Receive Date: 20151228
  Receipt Date: 20151228
  Transmission Date: 20160305
  Serious: Yes (Other)
  Sender: FDA-Public Use
  Company Number: AU-SA-2015SA214593

PATIENT
  Age: 85 Year

DRUGS (4)
  1. ENOXAPARIN SODIUM. [Suspect]
     Active Substance: ENOXAPARIN SODIUM
     Indication: ANTICOAGULANT THERAPY
     Dosage: PARENTERAL
     Route: 058
  2. VITAMIN K [Concomitant]
     Active Substance: PHYTONADIONE
     Dosage: IV PUSH
     Route: 042
  3. WARFARIN SODIUM. [Suspect]
     Active Substance: WARFARIN SODIUM
     Route: 065
  4. WARFARIN SODIUM. [Suspect]
     Active Substance: WARFARIN SODIUM
     Route: 065

REACTIONS (3)
  - Graft loss [Unknown]
  - Wound haematoma [Unknown]
  - Haemoglobin decreased [Unknown]
